FAERS Safety Report 6948624-1 (Version None)
Quarter: 2010Q3

REPORT INFORMATION
  Report Type: 
  Country: None (occurrence: None)
  Receive Date: 20100828
  Receipt Date: 20091120
  Transmission Date: 20110219
  Serious: No
  Sender: FDA-Public Use
  Company Number: US-ABBOTT-09P-163-0610970-00

PATIENT
  Sex: Female
  Weight: 59.02 kg

DRUGS (6)
  1. NIASPAN [Suspect]
     Indication: BLOOD CHOLESTEROL INCREASED
     Dates: start: 20080301
  2. TOPROL-XL [Concomitant]
     Indication: PALPITATIONS
  3. ACTONEL [Concomitant]
     Indication: OSTEOPENIA
  4. GLUCOSAMINE CHONDROITNIN [Concomitant]
     Indication: ROUTINE HEALTH MAINTENANCE
  5. MULTIPLE VITAMINS [Concomitant]
     Indication: VITAMIN SUPPLEMENTATION
  6. FISH OIL [Concomitant]
     Indication: MEDICAL DIET

REACTIONS (4)
  - ABDOMINAL DISCOMFORT [None]
  - FLATULENCE [None]
  - FLUSHING [None]
  - GASTROOESOPHAGEAL REFLUX DISEASE [None]
